FAERS Safety Report 5132902-5 (Version None)
Quarter: 2006Q4

REPORT INFORMATION
  Report Type: 
  Country: None (occurrence: None)
  Receive Date: 20061023
  Receipt Date: 20060504
  Transmission Date: 20070319
  Serious: Yes (Hospitalization)
  Sender: FDA-Public Use
  Company Number: FR-AVENTIS-200611710FR

PATIENT
  Age: 74 Year
  Sex: Male

DRUGS (6)
  1. LASILIX                            /00032601/ [Suspect]
     Indication: DRUG USE FOR UNKNOWN INDICATION
     Route: 048
     Dates: start: 20051019, end: 20060208
  2. URBANYL [Suspect]
     Route: 048
     Dates: start: 20051019
  3. ALDACTONE [Suspect]
     Route: 048
     Dates: start: 20051019
  4. PREVISCAN                          /00261401/ [Suspect]
     Route: 048
     Dates: start: 20051019
  5. TARDYFERON                         /00023503/ [Suspect]
     Route: 048
     Dates: start: 20050212
  6. TRILEPTAL [Suspect]
     Route: 048
     Dates: start: 20061019

REACTIONS (4)
  - CONDITION AGGRAVATED [None]
  - RESPIRATORY ACIDOSIS [None]
  - RESPIRATORY FAILURE [None]
  - RIGHT VENTRICULAR FAILURE [None]
